FAERS Safety Report 17281470 (Version 1)
Quarter: 2020Q1

REPORT INFORMATION
  Report Type: Spontaneous
  Country: ES (occurrence: ES)
  Receive Date: 20200117
  Receipt Date: 20200117
  Transmission Date: 20200409
  Serious: Yes (Life-Threatening, Hospitalization, Other)
  Sender: FDA-Public Use
  Company Number: ES-TEVA-2020-ES-1168581

PATIENT
  Age: 34 Year
  Sex: Female
  Weight: 60 kg

DRUGS (11)
  1. RANITIDINA 50 MG [Suspect]
     Active Substance: RANITIDINE
     Indication: PROPHYLAXIS
     Dosage: 50MG IN TOTAL
     Route: 042
     Dates: start: 20190214
  2. OMEPRAZOL ABDRUG 20 MG CAPSULAS DURAS GASTRORRESISTENTES EFG , 14 CAPS [Suspect]
     Active Substance: OMEPRAZOLE
     Indication: PROPHYLAXIS
     Dates: start: 20190214
  3. PARACETAMOL ABAMED 1G COMPRIMIDOS EFG , 20 COMPRIMIDOS (BLISTER) [Suspect]
     Active Substance: ACETAMINOPHEN
     Indication: ANALGESIC THERAPY
     Dosage: 1G/8H
     Route: 042
     Dates: start: 20190214, end: 20190216
  4. PARACETAMOL 1G IV [Suspect]
     Active Substance: ACETAMINOPHEN
     Route: 065
     Dates: start: 20190217
  5. METAMIZOL [Suspect]
     Active Substance: METAMIZOLE SODIUM
     Indication: ANALGESIC THERAPY
     Dosage: 8 GRAMS IN TOTAL
     Route: 042
     Dates: start: 20190214
  6. OXIDO NITROSO MEDICINAL GAS GASMEDI, 1 BALA DE GAS DE 4,55 L [Suspect]
     Active Substance: NITRIC OXIDE
     Indication: ANAESTHESIA
     Route: 055
     Dates: start: 20190215, end: 20190215
  7. FILGASTRIM [Suspect]
     Active Substance: FILGRASTIM
     Route: 065
     Dates: start: 20190224
  8. METAMIZOL HARKLEY, INYECTABLE, 6 [Suspect]
     Active Substance: METAMIZOLE MAGNESIUM
     Indication: POSTOPERATIVE ANALGESIA
     Dosage: INFUSION IV OF METAMIZOL (8 G) + METOCROPRAMIDE (30 MG) AT 506 ML AT 21.08 ML/H
     Route: 042
     Dates: start: 20190214, end: 20190216
  9. MEROPENEM ACCORD 1 G POLVO PARA SOLUCION INYECTABLE Y PARA PERFUSION E [Suspect]
     Active Substance: MEROPENEM
     Route: 042
     Dates: start: 20190224
  10. AMOXICILINA / ACIDO CLAVULANICO DOMAC 2 G / 200 MG I.V. POLVO PARA PER [Suspect]
     Active Substance: AMOXICILLIN\CLAVULANIC ACID
     Dosage: 1 DOSAGE FORM IN TOTAL
     Route: 065
     Dates: start: 20190214
  11. LORAZEPAM ARISTO 1 MG COMPRIMIDOS EFG, 25 COMPRIMIDOS [Suspect]
     Active Substance: LORAZEPAM
     Route: 065
     Dates: start: 20190214

REACTIONS (3)
  - Anaemia [Unknown]
  - Agranulocytosis [Unknown]
  - Neutropenia [Unknown]

NARRATIVE: CASE EVENT DATE: 20190223
